FAERS Safety Report 4407658-1 (Version None)
Quarter: 2004Q3

REPORT INFORMATION
  Report Type: 
  Country: None (occurrence: None)
  Receive Date: 20040721
  Receipt Date: 20040709
  Transmission Date: 20050211
  Serious: No
  Sender: FDA-Public Use
  Company Number: 04H-167-0266621-00

PATIENT
  Sex: 0

DRUGS (8)
  1. BUPIVACAINE HCL [Suspect]
     Indication: ANALGESIC EFFECT
     Dosage: 0.5% AT 0.1 ML/KG/HR INTRAVENOUS; 1 HR AFTER END OF SURGERY
     Route: 042
  2. MORPHINE [Concomitant]
  3. DICLOFENAC [Concomitant]
  4. PROPOFOL [Concomitant]
  5. FENTANYL [Concomitant]
  6. VECURONIUM BROMIDE [Concomitant]
  7. ISOFLURANE [Concomitant]
  8. OXYGEN [Concomitant]

REACTIONS (1)
  - ATELECTASIS [None]
